FAERS Safety Report 19731863 (Version 1)
Quarter: 2021Q3

REPORT INFORMATION
  Report Type: Spontaneous
  Country: US (occurrence: US)
  Receive Date: 20210819
  Receipt Date: 20210819
  Transmission Date: 20211014
  Serious: Yes (Other)
  Sender: FDA-Public Use
  Company Number: None

PATIENT
  Age: 83 Year
  Sex: Female

DRUGS (1)
  1. REPATHA [Suspect]
     Active Substance: EVOLOCUMAB
     Indication: HYPERLIPIDAEMIA
     Route: 058
     Dates: start: 20210331, end: 20210701

REACTIONS (3)
  - Hypertension [None]
  - Confusional state [None]
  - Headache [None]

NARRATIVE: CASE EVENT DATE: 20210701
